FAERS Safety Report 6503870-6 (Version None)
Quarter: 2009Q4

REPORT INFORMATION
  Report Type: 
  Country: None (occurrence: None)
  Receive Date: 20091217
  Receipt Date: 20091209
  Transmission Date: 20100525
  Serious: Yes (Hospitalization)
  Sender: FDA-Public Use
  Company Number: B0613139A

PATIENT
  Sex: Female

DRUGS (11)
  1. ARIXTRA [Suspect]
     Indication: THROMBOSIS PROPHYLAXIS
     Dosage: 7.5MG PER DAY
     Route: 058
     Dates: start: 20090603, end: 20090713
  2. APROVEL [Concomitant]
     Dosage: 300MG PER DAY
     Route: 048
  3. SECTRAL [Concomitant]
     Dosage: 100MG TWICE PER DAY
     Route: 048
  4. SOTALOL HCL [Concomitant]
     Dosage: 80MG TWICE PER DAY
     Route: 048
  5. CORDARONE [Concomitant]
     Indication: ATRIAL FIBRILLATION
     Dosage: 200MG TWICE PER DAY
     Route: 048
  6. ALDALIX [Concomitant]
     Dosage: 1CAP PER DAY
     Route: 048
  7. FLUOXETINE [Concomitant]
     Dosage: 20MG PER DAY
     Route: 048
  8. KEPPRA [Concomitant]
     Indication: EPILEPSY
     Dosage: 500MG TWICE PER DAY
     Route: 048
  9. LEXOMIL [Concomitant]
     Dosage: .5TAB PER DAY
     Route: 048
  10. NEXIUM [Concomitant]
     Dosage: 1UNIT PER DAY
     Route: 048
  11. CIFLOX [Concomitant]
     Dosage: 500MG TWICE PER DAY
     Route: 048

REACTIONS (7)
  - APHASIA [None]
  - CEREBRAL HAEMATOMA [None]
  - HEMIANOPIA [None]
  - INCORRECT DOSE ADMINISTERED [None]
  - INCORRECT DRUG ADMINISTRATION DURATION [None]
  - MOTOR DYSFUNCTION [None]
  - PARESIS [None]
